FAERS Safety Report 4537270-5 (Version None)
Quarter: 2004Q4

REPORT INFORMATION
  Report Type: 
  Country: None (occurrence: None)
  Receive Date: 20041223
  Receipt Date: 20041214
  Transmission Date: 20050328
  Serious: Yes (Other)
  Sender: FDA-Public Use
  Company Number: PHBS2004JP16954

PATIENT
  Age: 57 Year
  Sex: Female

DRUGS (3)
  1. FAMOTIDINE [Concomitant]
     Route: 048
  2. LOXONIN [Concomitant]
     Route: 048
  3. NEORAL [Suspect]
     Indication: CORNEAL TRANSPLANT
     Dosage: 25 MG/DAY
     Route: 048
     Dates: start: 20041130, end: 20041209

REACTIONS (3)
  - DUODENAL STENOSIS [None]
  - OEDEMA MUCOSAL [None]
  - VOMITING [None]
